FAERS Safety Report 6331171-8 (Version None)
Quarter: 2009Q3

REPORT INFORMATION
  Report Type: 
  Country: None (occurrence: None)
  Receive Date: 20090827
  Receipt Date: 20090818
  Transmission Date: 20100115
  Serious: Yes (Other)
  Sender: FDA-Public Use
  Company Number: US-PFIZER INC-2005117834

PATIENT
  Sex: Female
  Weight: 77 kg

DRUGS (7)
  1. PROVERA [Suspect]
     Indication: HORMONE REPLACEMENT THERAPY
     Dosage: 10 MG, UNK
     Route: 048
     Dates: start: 19970101, end: 20010901
  2. MEDROXYPROGESTERONE AND MEDROXYPROGESTERONE ACETATE [Suspect]
     Indication: HORMONE REPLACEMENT THERAPY
     Dosage: 10 MG, UNK
     Route: 065
     Dates: start: 19970101, end: 20010901
  3. PREMARIN [Suspect]
     Indication: HORMONE REPLACEMENT THERAPY
     Dosage: 0.625 MG, UNK
     Route: 065
     Dates: start: 20010201, end: 20010901
  4. METOPROLOL [Concomitant]
     Indication: ARRHYTHMIA
     Dosage: 100 MG, 2X/DAY
     Dates: start: 19890101
  5. VERAPAMIL [Concomitant]
     Indication: ARRHYTHMIA
     Dosage: 120 MG, 1X/DAY
     Dates: start: 19890101
  6. SYNTHROID [Concomitant]
     Indication: THYROID DISORDER
     Dosage: 1.25 MG, 1X/DAY
     Dates: start: 19890101
  7. CALCITRIOL [Concomitant]
     Indication: BLOOD CALCIUM DECREASED
     Dosage: UNK
     Dates: start: 19890101

REACTIONS (1)
  - BREAST CANCER FEMALE [None]
